FAERS Safety Report 16843311 (Version 1)
Quarter: 2019Q3

REPORT INFORMATION
  Report Type: Spontaneous
  Country: US (occurrence: US)
  Receive Date: 20190924
  Receipt Date: 20190924
  Transmission Date: 20191005
  Serious: No
  Sender: FDA-Public Use
  Company Number: US-KARYOPHARM-2019KPT000375

PATIENT

DRUGS (1)
  1. XPOVIO [Suspect]
     Active Substance: SELINEXOR
     Indication: PLASMA CELL MYELOMA
     Dosage: 80 MG, 2X/WEEK
     Route: 048
     Dates: start: 20190726

REACTIONS (5)
  - Plasma cell myeloma [Not Recovered/Not Resolved]
  - Hyponatraemia [Unknown]
  - Dysarthria [Unknown]
  - Confusional state [Unknown]
  - Drug ineffective [Unknown]
